FAERS Safety Report 23664902 (Version 1)
Quarter: 2024Q1

REPORT INFORMATION
  Report Type: Other
  Country: AU (occurrence: None)
  Receive Date: 20240322
  Receipt Date: 20240322
  Transmission Date: 20240409
  Serious: No
  Sender: FDA-Public Use
  Company Number: AU-ROCHE-3531183

PATIENT
  Age: 35 Year
  Sex: Female

DRUGS (1)
  1. OCREVUS [Suspect]
     Active Substance: OCRELIZUMAB
     Indication: Relapsing-remitting multiple sclerosis
     Dosage: PT HAS COMPLETED 2 X 300MG INTRO DOSES. ;ONGOING: YES
     Route: 041
     Dates: start: 20240301

REACTIONS (6)
  - Eye pain [Unknown]
  - Hypoaesthesia oral [Unknown]
  - Nervousness [Unknown]
  - Fatigue [Not Recovered/Not Resolved]
  - Catheter site bruise [Unknown]
  - Oral herpes [Unknown]

NARRATIVE: CASE EVENT DATE: 20240301
